FAERS Safety Report 6123005-1 (Version None)
Quarter: 2009Q1

REPORT INFORMATION
  Report Type: 
  Country: None (occurrence: None)
  Receive Date: 20090318
  Receipt Date: 20090311
  Transmission Date: 20090719
  Serious: Yes (Hospitalization)
  Sender: FDA-Public Use
  Company Number: JP-MERCK-0903USA00516

PATIENT
  Age: 50 Year
  Sex: Male

DRUGS (5)
  1. ZETIA [Suspect]
     Indication: DYSLIPIDAEMIA
     Route: 048
     Dates: start: 20080901, end: 20090212
  2. PEG-INTRON [Suspect]
     Indication: HEPATITIS C
     Route: 058
     Dates: start: 20090207, end: 20090207
  3. REBETOL [Suspect]
     Indication: HEPATITIS C
     Route: 048
     Dates: start: 20090207, end: 20090212
  4. INSULIN ASPART [Concomitant]
     Route: 065
  5. INSULIN DETEMIR [Concomitant]
     Route: 065

REACTIONS (1)
  - JAUNDICE [None]
